FAERS Safety Report 5637988-7 (Version None)
Quarter: 2008Q1

REPORT INFORMATION
  Report Type: 
  Country: None (occurrence: None)
  Receive Date: 20080226
  Receipt Date: 20080116
  Transmission Date: 20080703
  Serious: No
  Sender: FDA-Public Use
  Company Number: US-BAYER-200811598NA

PATIENT
  Age: 57 Year
  Sex: Female
  Weight: 91 kg

DRUGS (5)
  1. CLIMARA [Suspect]
     Indication: HORMONE REPLACEMENT THERAPY
     Route: 062
     Dates: start: 20010101
  2. EFFEXOR [Concomitant]
     Indication: ANXIETY
     Dates: start: 20030101
  3. TENORMIN [Concomitant]
     Indication: HYPERTENSION
     Dates: start: 19980101
  4. PRINZIDE [Concomitant]
     Indication: HYPERTENSION
     Dates: start: 19980101
  5. SYNTHROID [Concomitant]
     Indication: HYPOTHYROIDISM
     Dates: start: 19930101

REACTIONS (2)
  - APPLICATION SITE ERYTHEMA [None]
  - APPLICATION SITE PRURITUS [None]
